FAERS Safety Report 11983884 (Version 1)
Quarter: 2016Q1

REPORT INFORMATION
  Report Type: Spontaneous
  Country: JP (occurrence: JP)
  Receive Date: 20160201
  Receipt Date: 20160201
  Transmission Date: 20160526
  Serious: Yes (Other)
  Sender: FDA-Public Use
  Company Number: JP-BAYER-2016-015169

PATIENT
  Sex: Female

DRUGS (1)
  1. YAZ [Suspect]
     Active Substance: DROSPIRENONE\ETHINYL ESTRADIOL
     Indication: ENDOMETRIOSIS
     Route: 048

REACTIONS (6)
  - Metastases to lymph nodes [None]
  - Off label use [None]
  - Pyrexia [None]
  - Ovarian clear cell carcinoma [None]
  - Metastases to liver [None]
  - Metastases to abdominal cavity [None]
